FAERS Safety Report 6470506-2 (Version None)
Quarter: 2009Q4

REPORT INFORMATION
  Report Type: 
  Country: None (occurrence: None)
  Receive Date: 20091202
  Receipt Date: 20091202
  Transmission Date: 20100525
  Serious: No
  Sender: FDA-Public Use
  Company Number: None

PATIENT
  Sex: Female
  Weight: 81.6475 kg

DRUGS (1)
  1. YASMIN [Suspect]
     Indication: ORAL CONTRACEPTION
     Dosage: 1 TABLET 1 X DAILY PO
     Route: 048
     Dates: start: 20030101, end: 20070101

REACTIONS (2)
  - GALLBLADDER DISORDER [None]
  - VOMITING [None]
